FAERS Safety Report 6471650-6 (Version None)
Quarter: 2009Q4

REPORT INFORMATION
  Report Type: 
  Country: None (occurrence: None)
  Receive Date: 20091203
  Receipt Date: 20080324
  Transmission Date: 20100525
  Serious: Yes (Hospitalization, Other)
  Sender: FDA-Public Use
  Company Number: US-ELI_LILLY_AND_COMPANY-US200803005614

PATIENT
  Sex: Female

DRUGS (10)
  1. HUMALOG [Suspect]
     Indication: TYPE 1 DIABETES MELLITUS
     Dosage: SLIDING SCALE, 3/D
  2. HUMALOG [Suspect]
     Dosage: SLIDING SCALE, 3/D
  3. HUMALOG [Suspect]
     Route: 058
  4. HUMULIN R [Suspect]
     Indication: TYPE 1 DIABETES MELLITUS
  5. HUMULIN N [Suspect]
  6. LANTUS [Concomitant]
     Indication: DIABETES MELLITUS
     Dosage: 15 U, EACH EVENING
     Dates: start: 20030101
  7. LIPITOR [Concomitant]
     Indication: BLOOD CHOLESTEROL
  8. NORVASC [Concomitant]
     Indication: BLOOD PRESSURE
  9. ISORDIL [Concomitant]
     Indication: CARDIOVASCULAR EVENT PROPHYLAXIS
  10. COREG [Concomitant]
     Indication: BLOOD PRESSURE

REACTIONS (14)
  - BLINDNESS UNILATERAL [None]
  - BLOOD CHOLESTEROL INCREASED [None]
  - BLOOD GLUCOSE DECREASED [None]
  - BLOOD GLUCOSE INCREASED [None]
  - CARDIAC DISORDER [None]
  - CATARACT [None]
  - EYE HAEMORRHAGE [None]
  - HYPERTENSION [None]
  - LOSS OF CONSCIOUSNESS [None]
  - RENAL FAILURE [None]
  - RETINOPATHY [None]
  - STRESS [None]
  - VISUAL ACUITY REDUCED [None]
  - VISUAL IMPAIRMENT [None]
